FAERS Safety Report 8394916-1 (Version None)
Quarter: 2012Q2

REPORT INFORMATION
  Report Type: 
  Country: None (occurrence: None)
  Receive Date: 20120530
  Receipt Date: 20110609
  Transmission Date: 20120825
  Serious: No
  Sender: FDA-Public Use
  Company Number: US-GLAXOSMITHKLINE-A0931905A

PATIENT
  Age: 85 Year
  Sex: Female
  Weight: 68 kg

DRUGS (1)
  1. FLOLAN [Suspect]
     Indication: PULMONARY HYPERTENSION
     Dosage: 16NGKM UNKNOWN
     Route: 065
     Dates: start: 19990927

REACTIONS (4)
  - OEDEMA PERIPHERAL [None]
  - INFLAMMATION [None]
  - PAIN IN EXTREMITY [None]
  - APHTHOUS STOMATITIS [None]
